FAERS Safety Report 20346236 (Version 4)
Quarter: 2022Q2

REPORT INFORMATION
  Report Type: Report from Study
  Country: FR (occurrence: FR)
  Receive Date: 20220118
  Receipt Date: 20220623
  Transmission Date: 20220720
  Serious: Yes (Other)
  Sender: FDA-Public Use
  Company Number: FR-JNJFOC-20210743896

PATIENT
  Age: 54 Year
  Sex: Male

DRUGS (13)
  1. SPRAVATO [Suspect]
     Active Substance: ESKETAMINE
     Indication: Depression
     Dates: start: 20200526, end: 20200527
  2. SPRAVATO [Suspect]
     Active Substance: ESKETAMINE
     Dates: start: 20200528, end: 20200528
  3. SPRAVATO [Suspect]
     Active Substance: ESKETAMINE
     Dates: start: 20200602, end: 20200602
  4. SPRAVATO [Suspect]
     Active Substance: ESKETAMINE
     Dates: start: 20200604, end: 20200604
  5. SPRAVATO [Suspect]
     Active Substance: ESKETAMINE
     Dates: start: 20200611, end: 20200611
  6. SPRAVATO [Suspect]
     Active Substance: ESKETAMINE
     Dates: start: 20200616, end: 20200616
  7. SPRAVATO [Suspect]
     Active Substance: ESKETAMINE
     Dates: start: 20200623, end: 20200623
  8. SPRAVATO [Suspect]
     Active Substance: ESKETAMINE
     Dates: start: 20200708, end: 20200708
  9. SPRAVATO [Suspect]
     Active Substance: ESKETAMINE
     Dates: start: 20200715, end: 20200715
  10. SPRAVATO [Suspect]
     Active Substance: ESKETAMINE
     Dates: start: 20200722, end: 20200722
  11. SPRAVATO [Suspect]
     Active Substance: ESKETAMINE
     Dates: start: 20200729, end: 20200729
  12. SPRAVATO [Suspect]
     Active Substance: ESKETAMINE
     Dates: start: 20200701, end: 20200701
  13. ANETHOLTRITHION [Concomitant]
     Active Substance: ANETHOLTRITHION
     Indication: Gastrointestinal disorder
     Dosage: IF NECESSARY

REACTIONS (9)
  - Suicidal ideation [Recovered/Resolved]
  - Hallucination [Recovered/Resolved]
  - Dissociation [Recovered/Resolved]
  - Blood pressure increased [Recovered/Resolved]
  - Somnolence [Recovered/Resolved]
  - Sedation [Recovered/Resolved]
  - Tinnitus [Recovered/Resolved]
  - Dizziness [Recovered/Resolved]
  - Drug ineffective [Not Recovered/Not Resolved]

NARRATIVE: CASE EVENT DATE: 20200526
